FAERS Safety Report 10155090 (Version 1)
Quarter: 2014Q2

REPORT INFORMATION
  Report Type: Spontaneous
  Country: US (occurrence: US)
  Receive Date: 20140506
  Receipt Date: 20140506
  Transmission Date: 20141212
  Serious: No
  Sender: FDA-Public Use
  Company Number: US-ASTRAZENECA-2013SE84919

PATIENT
  Age: 81 Year
  Sex: Female
  Weight: 57.2 kg

DRUGS (4)
  1. PRILOSEC [Suspect]
     Indication: DYSPEPSIA
     Route: 048
     Dates: start: 1993
  2. PRILOSEC [Suspect]
     Indication: DYSPEPSIA
     Route: 048
  3. PRILOSEC [Suspect]
     Indication: DYSPEPSIA
     Route: 048
  4. ANTIHYPERTENSIVE [Concomitant]
     Dosage: UNK UNK

REACTIONS (3)
  - Therapy cessation [Unknown]
  - Dyspepsia [Recovered/Resolved]
  - Diarrhoea [Not Recovered/Not Resolved]
